FAERS Safety Report 8839225 (Version 1)
Quarter: 2012Q4

REPORT INFORMATION
  Report Type: 
  Country: US (occurrence: US)
  Receive Date: 20121015
  Receipt Date: 20121015
  Transmission Date: 20130627
  Serious: No
  Sender: FDA-Public Use
  Company Number: US-B.I. PHARMACEUTICALS,INC./RIDGEFIELD-2012-BP-24367BP

PATIENT
  Sex: Female
  Weight: 49.9 kg

DRUGS (11)
  1. PRADAXA [Suspect]
     Indication: ATRIAL FLUTTER
     Dosage: 300 mg
     Route: 048
     Dates: start: 201204
  2. PLAVIX [Concomitant]
     Dosage: 75 mg
     Route: 048
  3. POTASSIUM [Concomitant]
     Dosage: 10 mEq
     Route: 048
  4. COUMADIN [Concomitant]
     Indication: ATRIAL FLUTTER
     Dosage: 2 mg
     Route: 048
  5. NIFEDIPINE [Concomitant]
     Dosage: 30 mg
     Route: 048
  6. DILTIAZEM [Concomitant]
     Dosage: 120 mg
     Route: 048
  7. LISINOPRIL [Concomitant]
     Indication: HYPERTENSION
     Route: 048
  8. PANTOPRAZOLE [Concomitant]
     Dosage: 40 mg
     Route: 048
  9. ASPIRIN [Concomitant]
     Dosage: 81 mg
     Route: 048
  10. CALCIUM [Concomitant]
     Route: 048
  11. SPECTRAVITE [Concomitant]
     Route: 048

REACTIONS (5)
  - Gastrooesophageal reflux disease [Not Recovered/Not Resolved]
  - Abnormal loss of weight [Not Recovered/Not Resolved]
  - Dyspnoea [Not Recovered/Not Resolved]
  - Decreased appetite [Not Recovered/Not Resolved]
  - Hypopnoea [Not Recovered/Not Resolved]
